FAERS Safety Report 4453589-0 (Version None)
Quarter: 2004Q3

REPORT INFORMATION
  Report Type: 
  Country: None (occurrence: None)
  Receive Date: 20040920
  Receipt Date: 20040819
  Transmission Date: 20050211
  Serious: Yes (Hospitalization)
  Sender: FDA-Public Use
  Company Number: PHEH2004US09054

PATIENT
  Age: 88 Year
  Sex: Female
  Weight: 54 kg

DRUGS (5)
  1. DIOVAN [Suspect]
     Dosage: 160 MG, BID
     Route: 048
     Dates: start: 20040801
  2. DIOVAN [Suspect]
     Dosage: 80 MG, BID
     Route: 048
     Dates: start: 20020101, end: 20040801
  3. COUMADIN [Concomitant]
  4. CARDIZEM CD [Concomitant]
  5. LASIX [Concomitant]

REACTIONS (10)
  - ABDOMINAL DISCOMFORT [None]
  - ANAL DISCOMFORT [None]
  - BALANCE DISORDER [None]
  - CARDIAC FAILURE CONGESTIVE [None]
  - CHEST DISCOMFORT [None]
  - CONSTIPATION [None]
  - DYSPNOEA [None]
  - FLUID RETENTION [None]
  - PRURITUS [None]
  - STOMACH DISCOMFORT [None]
